FAERS Safety Report 4424945-1 (Version None)
Quarter: 2004Q3

REPORT INFORMATION
  Report Type: 
  Country: None (occurrence: None)
  Receive Date: 20040719
  Receipt Date: 20030130
  Transmission Date: 20050211
  Serious: Yes (Hospitalization)
  Sender: FDA-Public Use
  Company Number: 158306

PATIENT
  Age: 54 Year
  Sex: Female

DRUGS (16)
  1. AVONEX [Suspect]
     Indication: MULTIPLE SCLEROSIS
     Dosage: 30 MCG QW IM
     Dates: start: 20010601, end: 20021201
  2. SALAGEN [Concomitant]
  3. CELEBREX [Concomitant]
  4. NEURONTIN [Concomitant]
  5. GLUCOPHAGE [Concomitant]
  6. PRANDIN [Concomitant]
  7. SYNTHROID [Concomitant]
  8. LOPID [Concomitant]
  9. CALAN [Concomitant]
  10. LASIX [Concomitant]
  11. COLACE [Concomitant]
  12. ULTRAM [Concomitant]
  13. LORTAB [Concomitant]
  14. SEREVENT [Concomitant]
  15. PULMICORT [Concomitant]
  16. FLONASE [Concomitant]

REACTIONS (7)
  - BLOOD PRESSURE INCREASED [None]
  - CHEST PAIN [None]
  - DYSPNOEA [None]
  - INTESTINAL OBSTRUCTION [None]
  - NAUSEA [None]
  - RASH [None]
  - SWELLING FACE [None]
